FAERS Safety Report 9742310 (Version 1)
Quarter: 2013Q4

REPORT INFORMATION
  Report Type: Spontaneous
  Country: CH (occurrence: CH)
  Receive Date: 20131210
  Receipt Date: 20131210
  Transmission Date: 20140711
  Serious: Yes (Other)
  Sender: FDA-Public Use
  Company Number: CH-ELI_LILLY_AND_COMPANY-CH201311009609

PATIENT
  Age: 78 Year
  Sex: Female

DRUGS (7)
  1. CYMBALTA [Suspect]
     Indication: DEPRESSION
     Dosage: 30 MG, QD
     Route: 048
     Dates: start: 20130706, end: 20130721
  2. CYMBALTA [Suspect]
     Dosage: 60 MG, QD
     Route: 048
     Dates: start: 20130722, end: 20130812
  3. TRITTICO [Suspect]
     Indication: DEPRESSION
     Dosage: 150 MG, QD
     Route: 065
     Dates: start: 20130717, end: 20130724
  4. TRITTICO [Suspect]
     Dosage: 100 MG, QD
     Route: 065
     Dates: start: 20130724, end: 20130724
  5. TRITTICO [Suspect]
     Dosage: 50 MG, QD
     Route: 065
     Dates: start: 20130725, end: 20130812
  6. TRITTICO [Suspect]
     Dosage: 150 MG, QD
     Route: 065
     Dates: start: 20130812, end: 20130814
  7. LYRICA [Concomitant]
     Indication: PRODUCT USED FOR UNKNOWN INDICATION
     Dosage: UNK, UNKNOWN
     Route: 065

REACTIONS (1)
  - Liver injury [Recovered/Resolved]
